FAERS Safety Report 16925734 (Version 1)
Quarter: 2019Q4

REPORT INFORMATION
  Report Type: Spontaneous
  Country: US (occurrence: US)
  Receive Date: 20191016
  Receipt Date: 20191016
  Transmission Date: 20200122
  Serious: Yes (Other)
  Sender: FDA-Public Use
  Company Number: NVSC2019US001042

PATIENT
  Age: 72 Year
  Sex: Male

DRUGS (1)
  1. ROCURONIUM BROMIDE. [Suspect]
     Active Substance: ROCURONIUM BROMIDE
     Indication: ENDOTRACHEAL INTUBATION
     Dosage: UNK
     Route: 065

REACTIONS (6)
  - Dysphagia [Recovering/Resolving]
  - Dyspnoea at rest [Unknown]
  - Dysphonia [Recovering/Resolving]
  - Respiratory muscle weakness [Recovering/Resolving]
  - Muscular weakness [Recovering/Resolving]
  - Lethargy [Unknown]
